FAERS Safety Report 16542855 (Version 28)
Quarter: 2022Q4

REPORT INFORMATION
  Report Type: Report from Study
  Country: IE (occurrence: None)
  Receive Date: 20190709
  Receipt Date: 20221102
  Transmission Date: 20230113
  Serious: Yes (Hospitalization)
  Sender: FDA-Public Use
  Company Number: IE-ROCHE-2317974

PATIENT
  Age: 67 Year
  Sex: Female
  Weight: 75 kg

DRUGS (32)
  1. ATEZOLIZUMAB [Suspect]
     Active Substance: ATEZOLIZUMAB
     Indication: Triple negative breast cancer
     Dosage: ON 03/MAY/2019, HE RECEIVED MOST RECENT DOSE OF ATEZOLIZUMAB (840 MG) PRIOR TO ONSET OF SERIOUS ADVE
     Route: 041
     Dates: start: 20190208
  2. PACLITAXEL [Suspect]
     Active Substance: PACLITAXEL
     Indication: Triple negative breast cancer
     Dosage: ON 26/APR/2019, SHE RECEIVED MOST RECENT DOSE OF PACLITAXEL (149 MG) PRIOR TO ONSET OF SERIOUS ADVER
     Route: 042
     Dates: start: 20190208
  3. DOXORUBICIN [Suspect]
     Active Substance: DOXORUBICIN
     Indication: Triple negative breast cancer
     Dosage: ON 03/MAY/2019, SHE RECEIVED LAST DOSE OF DOXORUBICIN (111 MG) PRIOR TO ONSET OF SERIOUS ADVERSE EVE
     Route: 042
     Dates: start: 20190503
  4. CYCLOPHOSPHAMIDE [Suspect]
     Active Substance: CYCLOPHOSPHAMIDE
     Indication: Triple negative breast cancer
     Dosage: ON 03/MAY/2019, SHE RECEIVED LAST DOSE OF CYCLOPHOSPHAMIDE (1108 MG) PRIOR TO ONSET OF SERIOUS ADVER
     Route: 042
     Dates: start: 20190503
  5. PEGFILGRASTIM [Suspect]
     Active Substance: PEGFILGRASTIM
     Indication: Triple negative breast cancer
     Dosage: AT 13.24, INJECTION SOLUTION CONCENTRATE WAS ADMINISTERED
     Route: 058
     Dates: start: 20190503, end: 20190503
  6. PANTOPRAZOLE [Concomitant]
     Active Substance: PANTOPRAZOLE
     Route: 042
     Dates: start: 20190509, end: 20190513
  7. PANTOPRAZOLE [Concomitant]
     Active Substance: PANTOPRAZOLE
     Route: 048
     Dates: start: 20190531
  8. ACYCLOVIR [Concomitant]
     Active Substance: ACYCLOVIR
     Indication: Oral herpes
     Dates: start: 20190509, end: 20190513
  9. CYCLIZINE [Concomitant]
     Active Substance: CYCLIZINE
     Indication: Nausea
     Route: 042
     Dates: start: 20190509, end: 20190513
  10. CYCLIZINE [Concomitant]
     Active Substance: CYCLIZINE
     Route: 048
     Dates: start: 20190513, end: 20190614
  11. METOCLOPRAMIDE [Concomitant]
     Active Substance: METOCLOPRAMIDE
     Indication: Nausea
     Route: 048
     Dates: start: 20190509
  12. CEFTRIAXONE [Concomitant]
     Active Substance: CEFTRIAXONE
     Indication: Sepsis
     Route: 042
     Dates: start: 20190518, end: 20190518
  13. GENTAMICIN [Concomitant]
     Active Substance: GENTAMICIN
     Indication: Sepsis
     Route: 042
     Dates: start: 20190512, end: 20190512
  14. GENTAMICIN [Concomitant]
     Active Substance: GENTAMICIN
     Route: 042
     Dates: start: 20190518, end: 20190518
  15. MEROPENEM [Concomitant]
     Active Substance: MEROPENEM
     Indication: Sepsis
     Route: 042
     Dates: start: 20190518
  16. MEROPENEM [Concomitant]
     Active Substance: MEROPENEM
     Route: 042
     Dates: start: 20190520, end: 20190521
  17. MEROPENEM [Concomitant]
     Active Substance: MEROPENEM
     Route: 042
     Dates: start: 20190523, end: 20190527
  18. LINEZOLID [Concomitant]
     Active Substance: LINEZOLID
     Indication: Sepsis
     Route: 042
     Dates: start: 20190520, end: 20190520
  19. AMOXICILLIN\CLAVULANIC ACID [Concomitant]
     Active Substance: AMOXICILLIN\CLAVULANIC ACID
     Indication: Sepsis
     Route: 048
     Dates: start: 20190521, end: 20190523
  20. CASPOFUNGIN [Concomitant]
     Active Substance: CASPOFUNGIN
     Indication: Sepsis
     Route: 042
     Dates: start: 20190524, end: 20190524
  21. CASPOFUNGIN [Concomitant]
     Active Substance: CASPOFUNGIN
     Route: 042
     Dates: start: 20190525, end: 20190605
  22. TRAMADOL [Concomitant]
     Active Substance: TRAMADOL
     Indication: Pain
     Dates: start: 20190510, end: 20190512
  23. SLOW-K [Concomitant]
     Active Substance: POTASSIUM CHLORIDE
     Indication: Hypokalaemia
     Route: 048
     Dates: start: 20190511, end: 20190516
  24. ACETAMINOPHEN [Concomitant]
     Active Substance: ACETAMINOPHEN
     Indication: Pain
     Dosage: IV-ORAL
     Dates: start: 20190509, end: 20190519
  25. CLOTRIMAZOLE [Concomitant]
     Active Substance: CLOTRIMAZOLE
     Indication: Vulvovaginal candidiasis
     Dates: start: 20190513, end: 20190601
  26. IBUPROFEN [Concomitant]
     Active Substance: IBUPROFEN
     Indication: Pain
     Route: 048
     Dates: start: 20190512
  27. NEULASTA [Concomitant]
     Active Substance: PEGFILGRASTIM
     Indication: Neutropenia
     Route: 058
     Dates: start: 20190504, end: 20190505
  28. QUININE SULFATE [Concomitant]
     Active Substance: QUININE SULFATE
  29. CHLORHEXIDINE HYDROCHLORIDE\NEOMYCIN SULFATE [Concomitant]
     Active Substance: CHLORHEXIDINE HYDROCHLORIDE\NEOMYCIN SULFATE
     Indication: Nasal dryness
     Dates: start: 20190427, end: 20190505
  30. DOMPERIDONE [Concomitant]
     Active Substance: DOMPERIDONE
     Indication: Nausea
     Dates: start: 20190503, end: 20190506
  31. APREPITANT [Concomitant]
     Active Substance: APREPITANT
     Dates: start: 20190503, end: 20190503
  32. COTRIMOXAZOLE [Concomitant]
     Active Substance: SULFAMETHOXAZOLE\TRIMETHOPRIM
     Indication: Fungal infection
     Route: 061
     Dates: start: 20190514, end: 20190601

REACTIONS (5)
  - Vomiting [Recovered/Resolved]
  - Neutropenic sepsis [Recovered/Resolved]
  - Acute kidney injury [Recovered/Resolved]
  - Neutrophil count decreased [Recovered/Resolved]
  - Pulmonary embolism [Recovered/Resolved]

NARRATIVE: CASE EVENT DATE: 20190508
